FAERS Safety Report 10510635 (Version 1)
Quarter: 2014Q3

REPORT INFORMATION
  Report Type: Spontaneous
  Country: US (occurrence: None)
  Receive Date: 20140915
  Receipt Date: 20140915
  Transmission Date: 20150326
  Serious: Yes (Other)
  Sender: FDA-Public Use
  Company Number: 2013-US-002171

PATIENT
  Age: 44 Year
  Sex: Female
  Weight: 104.3 kg

DRUGS (2)
  1. BENICAR [Concomitant]
     Active Substance: OLMESARTAN MEDOXOMIL
  2. XYREM [Suspect]
     Active Substance: SODIUM OXYBATE
     Indication: NARCOLEPSY
     Route: 048
     Dates: start: 201305, end: 2013

REACTIONS (11)
  - Dysgeusia [None]
  - Drug dose omission [None]
  - Weight decreased [None]
  - Anxiety [None]
  - Miosis [None]
  - Eye irritation [None]
  - Fatigue [None]
  - Mood altered [None]
  - Drug intolerance [None]
  - Depression [None]
  - Lacrimation increased [None]

NARRATIVE: CASE EVENT DATE: 2013
